FAERS Safety Report 23243184 (Version 1)
Quarter: 2023Q4

REPORT INFORMATION
  Report Type: Report from Study
  Country: US (occurrence: US)
  Receive Date: 20231130
  Receipt Date: 20231130
  Transmission Date: 20240109
  Serious: No
  Sender: FDA-Public Use
  Company Number: US-ALXN-A202312708

PATIENT

DRUGS (1)
  1. STRENSIQ [Suspect]
     Active Substance: ASFOTASE ALFA
     Indication: Product used for unknown indication
     Dosage: UNK
     Route: 065

REACTIONS (4)
  - Humerus fracture [Recovered/Resolved]
  - Foot fracture [Recovered/Resolved]
  - Urine calcium increased [Unknown]
  - Traumatic fracture [Unknown]

NARRATIVE: CASE EVENT DATE: 20220620
